FAERS Safety Report 8258070-9 (Version None)
Quarter: 2012Q2

REPORT INFORMATION
  Report Type: 
  Country: None (occurrence: None)
  Receive Date: 20120404
  Receipt Date: 20120326
  Transmission Date: 20120825
  Serious: Yes (Hospitalization, Other)
  Sender: FDA-Public Use
  Company Number: BR-SANOFI-AVENTIS-2012SA020990

PATIENT
  Age: 62 Year
  Sex: Male
  Weight: 97 kg

DRUGS (6)
  1. METFORMIN HCL [Concomitant]
     Indication: TYPE 2 DIABETES MELLITUS
     Route: 048
  2. LANTUS [Suspect]
     Dosage: START DATE:ABOUT 10 YEARS AGOFREQ.-IN THE MORNING(FASTING)
     Route: 058
  3. AUTOPEN 24 [Suspect]
     Indication: DEVICE THERAPY
     Dosage: START DATE: ABOUT 10 YEARS AGO
  4. HYDROCHLOROTHIAZIDE/LOSARTAN POTASSIUM [Concomitant]
     Indication: BLOOD PRESSURE
     Route: 048
  5. LOPID [Concomitant]
     Route: 048
     Dates: start: 20110101
  6. METOPROLOL SUCCINATE [Concomitant]
     Route: 048
     Dates: start: 20110101

REACTIONS (3)
  - ARTERIAL OCCLUSIVE DISEASE [None]
  - INFARCTION [None]
  - OSTEOMYELITIS [None]
